FAERS Safety Report 5980758-0 (Version None)
Quarter: 2008Q4

REPORT INFORMATION
  Report Type: 
  Country: None (occurrence: None)
  Receive Date: 20081205
  Receipt Date: 20080408
  Transmission Date: 20090506
  Serious: No
  Sender: FDA-Public Use
  Company Number: A0721583A

PATIENT
  Age: 43 Year
  Sex: Male

DRUGS (1)
  1. COMMIT [Suspect]
     Dates: start: 20080407

REACTIONS (4)
  - HEADACHE [None]
  - INTENTIONAL DRUG MISUSE [None]
  - NONSPECIFIC REACTION [None]
  - OVERDOSE [None]
